FAERS Safety Report 6749184-0 (Version None)
Quarter: 2010Q2

REPORT INFORMATION
  Report Type: 
  Country: None (occurrence: None)
  Receive Date: 20100601
  Receipt Date: 20100521
  Transmission Date: 20101027
  Serious: Yes (Other)
  Sender: FDA-Public Use
  Company Number: FR-JNJFOC-20100509732

PATIENT
  Age: 68 Year
  Sex: Female

DRUGS (15)
  1. REMICADE [Suspect]
     Indication: PSORIASIS
     Route: 042
  2. REMICADE [Suspect]
     Route: 042
  3. REMICADE [Suspect]
     Route: 042
  4. REMICADE [Suspect]
     Route: 042
  5. REMICADE [Suspect]
     Route: 042
  6. METFORMIN HCL [Concomitant]
     Route: 065
  7. JANUVIA [Concomitant]
     Route: 065
  8. CELIPROLOL [Concomitant]
     Route: 065
  9. AMLOR [Concomitant]
     Route: 065
  10. PANTOPRAZOLE [Concomitant]
     Route: 065
  11. COAPROVEL [Concomitant]
     Route: 065
  12. LESCOL (FULVASTATIN) [Concomitant]
  13. TARDYFERON [Concomitant]
     Route: 065
  14. SPECIAFOLDINE [Concomitant]
     Route: 065
  15. PROPOFAN [Concomitant]
     Route: 065

REACTIONS (5)
  - DYSPNOEA [None]
  - INFUSION RELATED REACTION [None]
  - KNEE ARTHROPLASTY [None]
  - MALAISE [None]
  - RASH [None]
